FAERS Safety Report 20636801 (Version 4)
Quarter: 2025Q4

REPORT INFORMATION
  Report Type: Spontaneous
  Country: CA (occurrence: CA)
  Receive Date: 20220325
  Receipt Date: 20251124
  Transmission Date: 20260118
  Serious: Yes (Hospitalization, Other)
  Sender: TAKEDA
  Company Number: CA-TAKEDA-2022TUS018527

PATIENT
  Age: 56 Year
  Sex: Female

DRUGS (140)
  1. HUMAN IMMUNOGLOBULIN G [Suspect]
     Active Substance: HUMAN IMMUNOGLOBULIN G
     Indication: Product used for unknown indication
     Dosage: 70 GRAM
  2. RISEDRONATE SODIUM [Suspect]
     Active Substance: RISEDRONATE SODIUM
     Indication: Product used for unknown indication
     Dosage: 35 MILLIGRAM, 1/WEEK
  3. RISEDRONATE SODIUM [Suspect]
     Active Substance: RISEDRONATE SODIUM
     Dosage: 35 MILLIGRAM, 1/WEEK
  4. RISEDRONATE SODIUM [Suspect]
     Active Substance: RISEDRONATE SODIUM
     Dosage: UNK
  5. METHOTREXATE [Suspect]
     Active Substance: METHOTREXATE
     Indication: Rheumatoid arthritis
     Dosage: 15 MILLIGRAM, 1/WEEK
  6. METHOTREXATE [Suspect]
     Active Substance: METHOTREXATE
     Dosage: UNK
  7. METHOTREXATE [Suspect]
     Active Substance: METHOTREXATE
     Dosage: 17.5 MILLIGRAM
  8. METHOTREXATE [Suspect]
     Active Substance: METHOTREXATE
     Dosage: 15 MILLIGRAM
  9. METHOTREXATE [Suspect]
     Active Substance: METHOTREXATE
     Dosage: 20 MILLIGRAM
  10. METHOTREXATE [Suspect]
     Active Substance: METHOTREXATE
     Dosage: 15 MILLIGRAM, Q2WEEKS
  11. METHOTREXATE [Suspect]
     Active Substance: METHOTREXATE
     Dosage: 17.5 MILLIGRAM
  12. METHOTREXATE [Suspect]
     Active Substance: METHOTREXATE
     Indication: Rheumatoid arthritis
     Dosage: UNK
  13. RITUXIMAB [Suspect]
     Active Substance: RITUXIMAB
     Indication: Rheumatoid arthritis
     Dosage: UNK
  14. RITUXIMAB [Suspect]
     Active Substance: RITUXIMAB
     Dosage: 1000 MILLIGRAM
  15. RITUXIMAB [Suspect]
     Active Substance: RITUXIMAB
     Dosage: 1 MILLIGRAM
  16. RITUXIMAB [Suspect]
     Active Substance: RITUXIMAB
     Dosage: 1 MILLIGRAM, QD
  17. RITUXIMAB [Suspect]
     Active Substance: RITUXIMAB
     Dosage: 1 GRAM, QD
  18. RITUXIMAB [Suspect]
     Active Substance: RITUXIMAB
     Indication: Rheumatoid arthritis
     Dosage: 1000 MILLIGRAM
  19. PREDNISONE [Suspect]
     Active Substance: PREDNISONE
     Indication: Product used for unknown indication
     Dosage: 5 MILLIGRAM
  20. PREDNISONE [Suspect]
     Active Substance: PREDNISONE
     Dosage: 3 MILLIGRAM, QD
  21. PREDNISONE [Suspect]
     Active Substance: PREDNISONE
     Dosage: 1.3 MILLIGRAM
  22. PREDNISONE [Suspect]
     Active Substance: PREDNISONE
     Dosage: 5 MILLIGRAM, QD
  23. RITUXIMAB [Suspect]
     Active Substance: RITUXIMAB
     Indication: Rheumatoid arthritis
     Dosage: 1 GRAM, QD
  24. RITUXIMAB [Suspect]
     Active Substance: RITUXIMAB
     Dosage: 1 GRAM, QD
  25. RITUXIMAB [Suspect]
     Active Substance: RITUXIMAB
     Dosage: UNK
  26. RITUXIMAB [Suspect]
     Active Substance: RITUXIMAB
     Dosage: 1 MILLIGRAM
  27. ACTEMRA [Suspect]
     Active Substance: TOCILIZUMAB
     Indication: Rheumatoid arthritis
     Dosage: 200 MILLIGRAM, 1/WEEK
  28. ACTEMRA [Suspect]
     Active Substance: TOCILIZUMAB
     Dosage: 200 MILLIGRAM, Q2WEEKS
  29. ACTEMRA [Suspect]
     Active Substance: TOCILIZUMAB
     Dosage: 280 MILLIGRAM, Q2WEEKS
  30. ACTEMRA [Suspect]
     Active Substance: TOCILIZUMAB
     Dosage: 8 MILLIGRAM/KILOGRAM
  31. ACTEMRA [Suspect]
     Active Substance: TOCILIZUMAB
     Dosage: 280 MILLIGRAM
  32. ACTEMRA [Suspect]
     Active Substance: TOCILIZUMAB
     Dosage: UNK
  33. ACTEMRA [Suspect]
     Active Substance: TOCILIZUMAB
     Dosage: UNK
  34. ACTEMRA [Suspect]
     Active Substance: TOCILIZUMAB
     Dosage: 280 MILLIGRAM
  35. ADALIMUMAB [Suspect]
     Active Substance: ADALIMUMAB
     Indication: Rheumatoid arthritis
     Dosage: 40 MILLIGRAM, Q2WEEKS
  36. ADALIMUMAB [Suspect]
     Active Substance: ADALIMUMAB
     Dosage: 40 MILLIGRAM
  37. ALENDRONATE SODIUM [Suspect]
     Active Substance: ALENDRONATE SODIUM
     Indication: Rheumatoid arthritis
     Dosage: UNK
  38. ANAKINRA [Suspect]
     Active Substance: ANAKINRA
     Indication: Rheumatoid arthritis
     Dosage: 50 MILLIGRAM, QD
  39. ANAKINRA [Suspect]
     Active Substance: ANAKINRA
     Dosage: 100 MILLIGRAM
  40. ANAKINRA [Suspect]
     Active Substance: ANAKINRA
     Dosage: UNK
  41. ANAKINRA [Suspect]
     Active Substance: ANAKINRA
     Indication: Rheumatoid arthritis
     Dosage: UNK
  42. LEFLUNOMIDE [Suspect]
     Active Substance: LEFLUNOMIDE
     Indication: Rheumatoid arthritis
     Dosage: 20 MILLIGRAM
  43. LEFLUNOMIDE [Suspect]
     Active Substance: LEFLUNOMIDE
     Dosage: 20 MILLIGRAM
  44. LEFLUNOMIDE [Suspect]
     Active Substance: LEFLUNOMIDE
     Dosage: 20 MILLIGRAM, QD
  45. LEFLUNOMIDE [Suspect]
     Active Substance: LEFLUNOMIDE
     Dosage: 20 MILLIGRAM, Q1HR
  46. LEFLUNOMIDE [Suspect]
     Active Substance: LEFLUNOMIDE
     Dosage: 20 MILLIGRAM, Q1HR
  47. LEFLUNOMIDE [Suspect]
     Active Substance: LEFLUNOMIDE
     Dosage: 20 MILLIGRAM, QD
  48. NAPROXEN [Suspect]
     Active Substance: NAPROXEN
     Indication: Product used for unknown indication
     Dosage: UNK
  49. ARAVA [Suspect]
     Active Substance: LEFLUNOMIDE
     Indication: Rheumatoid arthritis
     Dosage: 20 MILLIGRAM, QD
  50. ARAVA [Suspect]
     Active Substance: LEFLUNOMIDE
     Dosage: UNK
  51. ARAVA [Suspect]
     Active Substance: LEFLUNOMIDE
     Dosage: 20 MILLIGRAM, QD
  52. CELECOXIB [Suspect]
     Active Substance: CELECOXIB
     Indication: Rheumatoid arthritis
     Dosage: 200 MILLIGRAM
  53. CETIRIZINE HCL [Suspect]
     Active Substance: CETIRIZINE HYDROCHLORIDE
     Indication: Rheumatoid arthritis
     Dosage: UNK
  54. CETIRIZINE [Suspect]
     Active Substance: CETIRIZINE HYDROCHLORIDE
     Indication: Rheumatoid arthritis
     Dosage: UNK
  55. CIMZIA [Suspect]
     Active Substance: CERTOLIZUMAB PEGOL
     Indication: Rheumatoid arthritis
     Dosage: UNK
  56. CIMZIA [Suspect]
     Active Substance: CERTOLIZUMAB PEGOL
     Indication: Psoriasis
  57. CIMZIA [Suspect]
     Active Substance: CERTOLIZUMAB PEGOL
     Indication: Rheumatoid arthritis
     Dosage: UNK
  58. CIMZIA [Suspect]
     Active Substance: CERTOLIZUMAB PEGOL
     Indication: Psoriasis
  59. CORTISONE ACETATE [Suspect]
     Active Substance: CORTISONE ACETATE
     Indication: Product used for unknown indication
     Dosage: UNK
     Route: 061
  60. DESOXIMETASONE [Suspect]
     Active Substance: DESOXIMETASONE
     Indication: Rheumatoid arthritis
     Dosage: UNK
  61. ERELZI [Suspect]
     Active Substance: ETANERCEPT-SZZS
     Indication: Rheumatoid arthritis
     Dosage: 25 MILLIGRAM, 1/WEEK
  62. ERELZI [Suspect]
     Active Substance: ETANERCEPT-SZZS
     Dosage: 25 MILLIGRAM, Q2WEEKS
  63. ERELZI [Suspect]
     Active Substance: ETANERCEPT-SZZS
     Dosage: 25 MILLIGRAM, 2/WEEK
  64. ERELZI [Suspect]
     Active Substance: ETANERCEPT-SZZS
     Dosage: 12.5 MILLIGRAM, 1/WEEK
  65. ERELZI [Suspect]
     Active Substance: ETANERCEPT-SZZS
     Dosage: 50 MILLIGRAM
  66. ERELZI [Suspect]
     Active Substance: ETANERCEPT-SZZS
     Dosage: 50 MILLIGRAM
  67. ERELZI [Suspect]
     Active Substance: ETANERCEPT-SZZS
     Dosage: 25 MILLIGRAM
  68. ERELZI [Suspect]
     Active Substance: ETANERCEPT-SZZS
     Indication: Rheumatoid arthritis
     Dosage: 25 MILLIGRAM, 1/WEEK
  69. ERELZI [Suspect]
     Active Substance: ETANERCEPT-SZZS
     Dosage: 500 MILLIGRAM
  70. FOLIC ACID [Suspect]
     Active Substance: FOLIC ACID
     Indication: Rheumatoid arthritis
     Dosage: 500 MILLIGRAM
  71. GOLD [Suspect]
     Active Substance: GOLD
     Indication: Product used for unknown indication
     Dosage: UNK
  72. HYDROXYCHLOROQUINE [Suspect]
     Active Substance: HYDROXYCHLOROQUINE
     Indication: Rheumatoid arthritis
     Dosage: 1 DOSAGE FORM, QD
  73. HYDROXYCHLOROQUINE [Suspect]
     Active Substance: HYDROXYCHLOROQUINE
     Dosage: 300 MILLIGRAM, QD
  74. HYDROXYCHLOROQUINE [Suspect]
     Active Substance: HYDROXYCHLOROQUINE
     Dosage: 5 MILLIGRAM, QD
  75. HYDROXYCHLOROQUINE [Suspect]
     Active Substance: HYDROXYCHLOROQUINE
     Dosage: UNK
  76. HYDROXYCHLOROQUINE [Suspect]
     Active Substance: HYDROXYCHLOROQUINE
     Dosage: 20 MILLIGRAM
  77. HYDROXYCHLOROQUINE [Suspect]
     Active Substance: HYDROXYCHLOROQUINE
     Dosage: 200 MILLIGRAM, BID
  78. HYDROXYCHLOROQUINE [Suspect]
     Active Substance: HYDROXYCHLOROQUINE
     Dosage: 5 MILLIGRAM, QD
  79. HYDROXYCHLOROQUINE [Suspect]
     Active Substance: HYDROXYCHLOROQUINE
     Dosage: 300 MILLIGRAM, QD
  80. HYDROXYCHLOROQUINE [Suspect]
     Active Substance: HYDROXYCHLOROQUINE
     Indication: Rheumatoid arthritis
     Dosage: 200 MILLIGRAM
  81. HYDROXYCHLOROQUINE [Suspect]
     Active Substance: HYDROXYCHLOROQUINE
     Dosage: 5 MILLIGRAM, QD
  82. HYDROXYCHLOROQUINE [Suspect]
     Active Substance: HYDROXYCHLOROQUINE
     Dosage: UNK UNK, QD
  83. HYDROXYCHLOROQUINE [Suspect]
     Active Substance: HYDROXYCHLOROQUINE
     Dosage: 20 MILLIGRAM
  84. HYDROXYCHLOROQUINE [Suspect]
     Active Substance: HYDROXYCHLOROQUINE
     Dosage: 300 MILLIGRAM, QD
  85. HYDROXYCHLOROQUINE [Suspect]
     Active Substance: HYDROXYCHLOROQUINE
     Dosage: 300 MILLIGRAM
  86. HYDROXYCHLOROQUINE [Suspect]
     Active Substance: HYDROXYCHLOROQUINE
     Dosage: 1 DOSAGE FORM
  87. HYDROXYCHLOROQUINE [Suspect]
     Active Substance: HYDROXYCHLOROQUINE
     Dosage: 300 MILLIGRAM, QD
  88. HYDROXYCHLOROQUINE [Suspect]
     Active Substance: HYDROXYCHLOROQUINE
     Dosage: 300 MILLIGRAM
  89. HYDROXYCHLOROQUINE [Suspect]
     Active Substance: HYDROXYCHLOROQUINE
     Dosage: UNK
  90. HYDROXYCHLOROQUINE [Suspect]
     Active Substance: HYDROXYCHLOROQUINE
     Dosage: 20 MILLIGRAM
  91. HYDROXYCHLOROQUINE [Suspect]
     Active Substance: HYDROXYCHLOROQUINE
     Dosage: 5 MILLIGRAM, QD
  92. HYDROXYCHLOROQUINE SULFATE [Suspect]
     Active Substance: HYDROXYCHLOROQUINE SULFATE
     Indication: Rheumatoid arthritis
     Dosage: 300 MILLIGRAM, QD
  93. HYDROXYCHLOROQUINE SULFATE [Suspect]
     Active Substance: HYDROXYCHLOROQUINE SULFATE
     Dosage: 1 DOSAGE FORM
  94. HYDROXYCHLOROQUINE SULFATE [Suspect]
     Active Substance: HYDROXYCHLOROQUINE SULFATE
     Dosage: UNK
  95. HYDROXYCHLOROQUINE SULFATE [Suspect]
     Active Substance: HYDROXYCHLOROQUINE SULFATE
     Dosage: 20 MILLIGRAM
  96. HYDROXYCHLOROQUINE SULFATE [Suspect]
     Active Substance: HYDROXYCHLOROQUINE SULFATE
     Dosage: 300 MILLIGRAM, Q1HR
  97. HYDROXYCHLOROQUINE SULFATE [Suspect]
     Active Substance: HYDROXYCHLOROQUINE SULFATE
     Dosage: 20 MILLIGRAM, BID
  98. HYDROXYCHLOROQUINE SULFATE [Suspect]
     Active Substance: HYDROXYCHLOROQUINE SULFATE
     Dosage: 300 MILLIGRAM, QD
  99. HYDROXYCHLOROQUINE SULFATE [Suspect]
     Active Substance: HYDROXYCHLOROQUINE SULFATE
     Dosage: 300 MILLIGRAM
  100. HYDROXYCHLOROQUINE SULFATE [Suspect]
     Active Substance: HYDROXYCHLOROQUINE SULFATE
     Dosage: 200 MILLIGRAM, BID
  101. HYDROXYCHLOROQUINE SULFATE [Suspect]
     Active Substance: HYDROXYCHLOROQUINE SULFATE
     Indication: Rheumatoid arthritis
     Dosage: 300 MILLIGRAM
  102. INFLIXIMAB [Suspect]
     Active Substance: INFLIXIMAB
     Indication: Product used for unknown indication
     Dosage: 3 MILLIGRAM/KILOGRAM
  103. INFLIXIMAB [Suspect]
     Active Substance: INFLIXIMAB
     Dosage: 5 MILLIGRAM/KILOGRAM
  104. LEFLUNOMIDE [Suspect]
     Active Substance: LEFLUNOMIDE
     Indication: Rheumatoid arthritis
     Dosage: 1 DOSAGE FORM, QD
  105. LEFLUNOMIDE [Suspect]
     Active Substance: LEFLUNOMIDE
     Dosage: 20 MILLIGRAM
  106. LEFLUNOMIDE [Suspect]
     Active Substance: LEFLUNOMIDE
     Dosage: UNK
  107. LEFLUNOMIDE [Suspect]
     Active Substance: LEFLUNOMIDE
     Dosage: 20 MILLIGRAM, QD
  108. LEFLUNOMIDE [Suspect]
     Active Substance: LEFLUNOMIDE
     Dosage: 20 MILLIGRAM, QD
  109. LEFLUNOMIDE [Suspect]
     Active Substance: LEFLUNOMIDE
     Dosage: 20 MILLIGRAM, Q1HR
  110. LEFLUNOMIDE [Suspect]
     Active Substance: LEFLUNOMIDE
     Indication: Rheumatoid arthritis
     Dosage: UNK
  111. LEFLUNOMIDE [Suspect]
     Active Substance: LEFLUNOMIDE
     Indication: Rheumatoid arthritis
     Dosage: UNK
  112. NAPROXEN [Suspect]
     Active Substance: NAPROXEN
     Indication: Rheumatoid arthritis
     Dosage: 50 MILLIGRAM
  113. NAPROXEN [Suspect]
     Active Substance: NAPROXEN
     Dosage: 500 MILLIGRAM
  114. NAPROXEN [Suspect]
     Active Substance: NAPROXEN
     Dosage: UNK
  115. ORENCIA [Suspect]
     Active Substance: ABATACEPT
     Indication: Rheumatoid arthritis
     Dosage: 250 MILLIGRAM
  116. ORENCIA [Suspect]
     Active Substance: ABATACEPT
     Indication: Product used for unknown indication
     Dosage: 250 MILLIGRAM, MONTHLY
  117. ORENCIA [Suspect]
     Active Substance: ABATACEPT
     Dosage: 150 MILLIGRAM, 1/WEEK
  118. ORENCIA [Suspect]
     Active Substance: ABATACEPT
     Dosage: 750 MILLIGRAM
  119. ORENCIA [Suspect]
     Active Substance: ABATACEPT
     Dosage: 750 MILLIGRAM
  120. ORENCIA [Suspect]
     Active Substance: ABATACEPT
     Indication: Rheumatoid arthritis
     Dosage: 250.0 MILLIGRAM, MONTHLY
  121. ORENCIA [Suspect]
     Active Substance: ABATACEPT
     Dosage: 250 MILLIGRAM
  122. ORENCIA [Suspect]
     Active Substance: ABATACEPT
     Dosage: 750 MILLIGRAM
  123. ORENCIA [Suspect]
     Active Substance: ABATACEPT
     Dosage: 150 MILLIGRAM, 1/WEEK
  124. PHTHALYLSULFATHIAZOLE [Suspect]
     Active Substance: PHTHALYLSULFATHIAZOLE
     Indication: Rheumatoid arthritis
     Dosage: UNK
  125. REMICADE [Suspect]
     Active Substance: INFLIXIMAB
     Indication: Rheumatoid arthritis
     Dosage: 35 MILLIGRAM
  126. REMICADE [Suspect]
     Active Substance: INFLIXIMAB
     Indication: Rheumatoid arthritis
     Dosage: 5 MILLIGRAM/KILOGRAM
  127. REMICADE [Suspect]
     Active Substance: INFLIXIMAB
     Dosage: 30 MILLIGRAM
  128. RISEDRONIC ACID [Suspect]
     Active Substance: RISEDRONIC ACID
     Indication: Product used for unknown indication
     Dosage: UNK
  129. SIMPONI [Suspect]
     Active Substance: GOLIMUMAB
     Indication: Rheumatoid arthritis
     Dosage: 50 MILLIGRAM, 1/WEEK
  130. SIMPONI [Suspect]
     Active Substance: GOLIMUMAB
     Dosage: 50 MILLIGRAM, MONTHLY
  131. SIMPONI [Suspect]
     Active Substance: GOLIMUMAB
     Indication: Rheumatoid arthritis
     Dosage: UNK
  132. SULFASALAZINE [Suspect]
     Active Substance: SULFASALAZINE
     Indication: Rheumatoid arthritis
     Dosage: 500 MILLIGRAM
  133. SULFASALAZINE [Suspect]
     Active Substance: SULFASALAZINE
     Dosage: 250 MILLIGRAM, QD
  134. TOCILIZUMAB [Suspect]
     Active Substance: TOCILIZUMAB
     Indication: Rheumatoid arthritis
     Dosage: 280 MILLIGRAM
  135. TOCILIZUMAB [Suspect]
     Active Substance: TOCILIZUMAB
     Dosage: 8 MILLIGRAM/KILOGRAM
  136. TRIAMCINOLONE [Suspect]
     Active Substance: TRIAMCINOLONE
     Indication: Product used for unknown indication
     Dosage: UNK
  137. TRIAMCINOLONE ACETONIDE [Suspect]
     Active Substance: TRIAMCINOLONE ACETONIDE
     Indication: Product used for unknown indication
     Dosage: UNK
  138. XELJANZ [Suspect]
     Active Substance: TOFACITINIB CITRATE
     Indication: Rheumatoid arthritis
     Dosage: 5 MILLIGRAM, BID
  139. XELJANZ [Suspect]
     Active Substance: TOFACITINIB CITRATE
     Dosage: 5 MILLIGRAM, QD
  140. WELLBUTRIN [Concomitant]
     Active Substance: BUPROPION HYDROCHLORIDE
     Indication: Product used for unknown indication
     Dosage: UNK

REACTIONS (61)
  - Abdominal discomfort [Not Recovered/Not Resolved]
  - Abdominal pain [Not Recovered/Not Resolved]
  - Adrenal insufficiency [Not Recovered/Not Resolved]
  - Alopecia [Not Recovered/Not Resolved]
  - Ankle arthroplasty [Not Recovered/Not Resolved]
  - Anti-cyclic citrullinated peptide antibody positive [Not Recovered/Not Resolved]
  - Arthritis [Not Recovered/Not Resolved]
  - Arthropathy [Not Recovered/Not Resolved]
  - Condition aggravated [Not Recovered/Not Resolved]
  - Contraindicated product administered [Not Recovered/Not Resolved]
  - Diarrhoea [Not Recovered/Not Resolved]
  - Dizziness [Not Recovered/Not Resolved]
  - Drug hypersensitivity [Not Recovered/Not Resolved]
  - Drug ineffective [Not Recovered/Not Resolved]
  - Drug intolerance [Not Recovered/Not Resolved]
  - Drug tolerance [Not Recovered/Not Resolved]
  - Fatigue [Not Recovered/Not Resolved]
  - Fibromyalgia [Not Recovered/Not Resolved]
  - Foot deformity [Not Recovered/Not Resolved]
  - Foot operation [Not Recovered/Not Resolved]
  - Gastroenteritis viral [Not Recovered/Not Resolved]
  - Glossodynia [Not Recovered/Not Resolved]
  - Hand deformity [Not Recovered/Not Resolved]
  - Hypertension [Not Recovered/Not Resolved]
  - Hypocalcaemia [Not Recovered/Not Resolved]
  - Hypokalaemia [Not Recovered/Not Resolved]
  - Hypotension [Not Recovered/Not Resolved]
  - Ill-defined disorder [Not Recovered/Not Resolved]
  - Immunodeficiency [Not Recovered/Not Resolved]
  - Infection [Not Recovered/Not Resolved]
  - Intentional product use issue [Not Recovered/Not Resolved]
  - Joint destruction [Not Recovered/Not Resolved]
  - Limb discomfort [Not Recovered/Not Resolved]
  - Loss of consciousness [Not Recovered/Not Resolved]
  - Loss of personal independence in daily activities [Not Recovered/Not Resolved]
  - Malaise [Not Recovered/Not Resolved]
  - Mobility decreased [Not Recovered/Not Resolved]
  - Nausea [Not Recovered/Not Resolved]
  - Nodule [Not Recovered/Not Resolved]
  - Obesity [Not Recovered/Not Resolved]
  - Oedema [Not Recovered/Not Resolved]
  - Off label use [Not Recovered/Not Resolved]
  - Pain [Not Recovered/Not Resolved]
  - Pemphigus [Not Recovered/Not Resolved]
  - Pleural effusion [Not Recovered/Not Resolved]
  - Polyarthritis [Not Recovered/Not Resolved]
  - Product use issue [Not Recovered/Not Resolved]
  - Psoriasis [Not Recovered/Not Resolved]
  - Pulmonary fibrosis [Not Recovered/Not Resolved]
  - Pyrexia [Not Recovered/Not Resolved]
  - Red blood cell sedimentation rate abnormal [Not Recovered/Not Resolved]
  - Rheumatoid arthritis [Not Recovered/Not Resolved]
  - Rheumatoid factor positive [Not Recovered/Not Resolved]
  - Septic shock [Not Recovered/Not Resolved]
  - Swelling [Not Recovered/Not Resolved]
  - Synovitis [Not Recovered/Not Resolved]
  - Systemic lupus erythematosus [Not Recovered/Not Resolved]
  - Therapeutic product effect decreased [Not Recovered/Not Resolved]
  - Therapy non-responder [Not Recovered/Not Resolved]
  - Vomiting [Not Recovered/Not Resolved]
  - Wheelchair user [Not Recovered/Not Resolved]
